FAERS Safety Report 23225161 (Version 1)
Quarter: 2023Q4

REPORT INFORMATION
  Report Type: Spontaneous
  Country: DE (occurrence: DE)
  Receive Date: 20231124
  Receipt Date: 20231124
  Transmission Date: 20240110
  Serious: Yes (Other)
  Sender: FDA-Public Use
  Company Number: DE-009507513-2311DEU008405

PATIENT
  Age: 72 Year
  Sex: Male
  Weight: 75 kg

DRUGS (3)
  1. PEMBROLIZUMAB [Suspect]
     Active Substance: PEMBROLIZUMAB
     Indication: Adenocarcinoma gastric
     Dosage: 200 MILLIGRAM, DAY 1 OF EVERY 3 WEEKS (Q3W)
     Route: 042
     Dates: start: 202309
  2. CAPECITABINE [Suspect]
     Active Substance: CAPECITABINE
     Indication: Adenocarcinoma gastric
     Dosage: 1000 MILLIGRAM/SQ. METER, 2 TIMES A DAY ON DAY 1 TO DAY 14 OF EVERY 3 WEEKS (CYCLICAL)
     Route: 048
     Dates: start: 202309
  3. OXALIPLATIN [Suspect]
     Active Substance: OXALIPLATIN
     Indication: Adenocarcinoma gastric
     Dosage: 130 MILLIGRAM/SQ. METER, DAY 1 OF EVERY 3 WEEKS (Q3W)
     Route: 042
     Dates: start: 202309

REACTIONS (5)
  - Neuropathy peripheral [Unknown]
  - Weight increased [Unknown]
  - Nausea [Unknown]
  - Physiotherapy [Unknown]
  - Off label use [Unknown]

NARRATIVE: CASE EVENT DATE: 20230901
